FAERS Safety Report 23310884 (Version 1)
Quarter: 2023Q4

REPORT INFORMATION
  Report Type: Spontaneous
  Country: GB (occurrence: GB)
  Receive Date: 20231218
  Receipt Date: 20231218
  Transmission Date: 20240109
  Serious: No
  Sender: FDA-Public Use
  Company Number: None

PATIENT
  Age: 46 Year
  Sex: Male

DRUGS (2)
  1. MYCOPHENOLATE MOFETIL [Suspect]
     Active Substance: MYCOPHENOLATE MOFETIL
     Indication: Eye disorder
     Dosage: UNK (TABLETS)
     Route: 065
  2. Clinitas Carbomer/Carbomer 980 [Concomitant]
     Indication: Product used for unknown indication
     Dosage: 1 DROP BOTH EYES (20 GRAM), QID
     Route: 065

REACTIONS (1)
  - Insomnia [Unknown]
